FAERS Safety Report 4744200-X (Version None)
Quarter: 2005Q3

REPORT INFORMATION
  Report Type: 
  Country: None (occurrence: None)
  Receive Date: 20050810
  Receipt Date: 20050810
  Transmission Date: 20060218
  Serious: No
  Sender: FDA-Public Use
  Company Number: None

PATIENT
  Age: 8 Year
  Sex: Male
  Weight: 26.3086 kg

DRUGS (1)
  1. AMPHETAMINE SALTS 10 MG EON LABS [Suspect]
     Indication: ATTENTION DEFICIT/HYPERACTIVITY DISORDER
     Dosage: 1 PILL (ORAL)  IN MORNING
     Route: 048
     Dates: start: 20031001, end: 20050701

REACTIONS (1)
  - CHEST PAIN [None]
